FAERS Safety Report 21082431 (Version 1)
Quarter: 2022Q3

REPORT INFORMATION
  Report Type: Spontaneous
  Country: US (occurrence: US)
  Receive Date: 20220714
  Receipt Date: 20220714
  Transmission Date: 20221026
  Serious: Yes (Other)
  Sender: FDA-Public Use
  Company Number: US-SLATE RUN PHARMACEUTICALS-22US001194

PATIENT

DRUGS (2)
  1. BIVALIRUDIN [Suspect]
     Active Substance: BIVALIRUDIN
     Indication: Anticoagulant therapy
     Dosage: UNK
     Route: 042
  2. BIVALIRUDIN [Suspect]
     Active Substance: BIVALIRUDIN
     Indication: Intracardiac thrombus
     Dosage: UNK
     Route: 042

REACTIONS (6)
  - Pancreatitis necrotising [Recovering/Resolving]
  - Lactic acidosis [Recovered/Resolved]
  - Hypotension [Recovering/Resolving]
  - Drug ineffective [Recovered/Resolved]
  - Haemorrhage [Recovering/Resolving]
  - Off label use [Recovered/Resolved]
